FAERS Safety Report 6725215-9 (Version None)
Quarter: 2010Q2

REPORT INFORMATION
  Report Type: 
  Country: None (occurrence: None)
  Receive Date: 20100514
  Receipt Date: 20100511
  Transmission Date: 20101027
  Serious: Yes (Death, Other)
  Sender: FDA-Public Use
  Company Number: PHHY2010BR30464

PATIENT
  Sex: Male
  Weight: 78 kg

DRUGS (5)
  1. EXELON [Suspect]
     Indication: DEMENTIA ALZHEIMER'S TYPE
     Dosage: 9 MG PER 5 SQ CM (ONE PATCH PER DAY)
     Route: 062
  2. EXELON [Suspect]
     Dosage: 18 MG PER 10 SQ CM (ONE PATCH PER DAY)
     Route: 062
  3. PROPRANOLOL [Concomitant]
     Indication: HYPERTENSION
     Dosage: UNK
     Route: 048
  4. SELOKEN [Concomitant]
     Indication: HYPERTENSION
     Route: 048
  5. ANTICOAGULANT CIT PHOS DEX ADENINE [Concomitant]
     Indication: COAGULOPATHY

REACTIONS (7)
  - ASTHENIA [None]
  - DECREASED APPETITE [None]
  - HEPATIC NEOPLASM [None]
  - INFECTION [None]
  - JAUNDICE [None]
  - NAUSEA [None]
  - NEOPLASM MALIGNANT [None]
